FAERS Safety Report 7096850-6 (Version None)
Quarter: 2010Q4

REPORT INFORMATION
  Report Type: 
  Country: None (occurrence: None)
  Receive Date: 20101111
  Receipt Date: 20101102
  Transmission Date: 20110411
  Serious: Yes (Hospitalization)
  Sender: FDA-Public Use
  Company Number: US-MPIJNJ-2010-05274

PATIENT
  Sex: Male

DRUGS (1)
  1. VELCADE [Suspect]
     Indication: MULTIPLE MYELOMA
     Dosage: 1.82 MG, UNK
     Route: 042
     Dates: start: 20100501, end: 20100601

REACTIONS (3)
  - PANCYTOPENIA [None]
  - PULMONARY OEDEMA [None]
  - RENAL FAILURE [None]
